FAERS Safety Report 18930492 (Version 1)
Quarter: 2021Q1

REPORT INFORMATION
  Report Type: Spontaneous
  Country: US (occurrence: US)
  Receive Date: 20210223
  Receipt Date: 20210223
  Transmission Date: 20210420
  Serious: Yes (Other)
  Sender: FDA-Public Use
  Company Number: US-FRESENIUS KABI-FK202101676

PATIENT
  Age: 38 Year
  Sex: Male

DRUGS (2)
  1. HALOPERIDOL INJECTION (MANUFACTURER UNKNOWN) [Suspect]
     Active Substance: HALOPERIDOL LACTATE
     Indication: AGITATION
  2. HALOPERIDOL INJECTION (MANUFACTURER UNKNOWN) [Suspect]
     Active Substance: HALOPERIDOL LACTATE
     Dosage: 2 TO 5 MG

REACTIONS (2)
  - Oromandibular dystonia [Not Recovered/Not Resolved]
  - Respiratory failure [Unknown]
